FAERS Safety Report 12714139 (Version 1)
Quarter: 2016Q3

REPORT INFORMATION
  Report Type: Spontaneous
  Country: US (occurrence: US)
  Receive Date: 20160905
  Receipt Date: 20160905
  Transmission Date: 20161109
  Serious: No
  Sender: FDA-Public Use
  Company Number: US-PFIZER INC-2016409898

PATIENT
  Age: 44 Year
  Sex: Female
  Weight: 96.16 kg

DRUGS (1)
  1. METOPROLOL TARTRATE. [Suspect]
     Active Substance: METOPROLOL TARTRATE
     Indication: BLOOD PRESSURE DIASTOLIC INCREASED
     Dosage: 25 MG, 2X/DAY

REACTIONS (1)
  - Blood pressure diastolic decreased [Unknown]
